FAERS Safety Report 10855281 (Version 4)
Quarter: 2015Q2

REPORT INFORMATION
  Report Type: Report from Study
  Country: JP (occurrence: JP)
  Receive Date: 20150223
  Receipt Date: 20150518
  Transmission Date: 20150821
  Serious: Yes (Death, Hospitalization)
  Sender: FDA-Public Use
  Company Number: JP-PFIZER INC-2015062661

PATIENT
  Age: 68 Year
  Sex: Male
  Weight: 57 kg

DRUGS (26)
  1. MORPHINE HYDROCHLORIDE [Concomitant]
     Active Substance: MORPHINE HYDROCHLORIDE
     Dosage: 16 MG, 1X/DAY
     Dates: start: 20140409, end: 20140412
  2. BLOPRESS [Concomitant]
     Active Substance: CANDESARTAN CILEXETIL
     Dosage: 8 MG, 1X/DAY
     Route: 048
     Dates: start: 20140223, end: 20140417
  3. PRIMPERAN [Concomitant]
     Active Substance: METOCLOPRAMIDE HYDROCHLORIDE
     Dosage: 5 MG, 2X/DAY
     Route: 048
     Dates: start: 20140401, end: 20140418
  4. HEPARIN [Concomitant]
     Active Substance: HEPARIN SODIUM
     Dosage: 20000 IU, UNK (CONTINUOUS)
     Dates: start: 20140223, end: 20140415
  5. ZANTAC [Concomitant]
     Active Substance: RANITIDINE HYDROCHLORIDE
     Dosage: 100 MG, 1X/DAY
     Dates: start: 20140329, end: 20140424
  6. MORPHINE HYDROCHLORIDE [Concomitant]
     Active Substance: MORPHINE HYDROCHLORIDE
     Dosage: 20 MG, 1X/DAY
     Dates: start: 20140407, end: 20140409
  7. NORMAL SALINE [Concomitant]
     Active Substance: SODIUM CHLORIDE
     Dosage: 50 ML, 3X/DAY
     Dates: start: 20140329, end: 20140425
  8. XALKORI [Suspect]
     Active Substance: CRIZOTINIB
     Indication: NON-SMALL CELL LUNG CANCER
     Dosage: 250 MG, 2X/DAY
     Route: 048
     Dates: start: 20140401, end: 20140418
  9. ACELIO [Suspect]
     Active Substance: ACETAMINOPHEN
     Dosage: 1000 MG, 2X/DAY
     Dates: start: 20140329, end: 20140416
  10. PNTWIN [Suspect]
     Active Substance: AMINO ACIDS\DEXTROSE\ELECTROLYTES NOS
     Dosage: 1100 ML, 1X/DAY
     Dates: start: 20140330, end: 20140421
  11. MUCOSTA [Concomitant]
     Active Substance: REBAMIPIDE
     Dosage: 100 MG, 3X/DAY
     Route: 048
     Dates: start: 20140318, end: 20140402
  12. ASPARA-CA [Concomitant]
     Active Substance: CALCIUM ASPARTATE
     Dosage: 400 MG, 3X/DAY
     Route: 048
     Dates: start: 20140320, end: 20140408
  13. ROCALTROL [Concomitant]
     Active Substance: CALCITRIOL
     Dosage: 0.25 ?G, 1X/DAY
     Route: 048
     Dates: start: 20140320, end: 20140412
  14. NORMAL SALINE [Concomitant]
     Active Substance: SODIUM CHLORIDE
     Dosage: 22 ML, 1X/DAY
     Dates: start: 20140327, end: 20140401
  15. ROPION [Concomitant]
     Active Substance: FLURBIPROFEN AXETIL
     Dosage: 50 MG, 3X/DAY
     Dates: start: 20140329, end: 20140425
  16. FLIVAS OD [Concomitant]
     Dosage: 75 MG, 1X/DAY
     Route: 048
     Dates: start: 20140401, end: 20140401
  17. FLIVAS OD [Concomitant]
     Dosage: 75 MG, 1X/DAY
     Route: 048
     Dates: start: 20140403, end: 20140403
  18. MULTAMIN [Concomitant]
     Dosage: 1 DF, 1X/DAY (1 VIAL)
     Dates: start: 20140329, end: 20140424
  19. ELEMENMIC [Concomitant]
     Active Substance: CUPRIC SULFATE\FERRIC CHLORIDE\MANGANESE CHLORIDE\POTASSIUM IODIDE\ZINC SULFATE
     Dosage: 2 ML, 1X/DAY
     Dates: start: 20140329, end: 20140424
  20. MORPHINE HYDROCHLORIDE [Concomitant]
     Active Substance: MORPHINE HYDROCHLORIDE
     Dosage: 20 MG, 1X/DAY
     Dates: start: 20140327, end: 20140401
  21. CRESTOR [Concomitant]
     Active Substance: ROSUVASTATIN CALCIUM
     Dosage: 2.5 MG, 1X/DAY
     Route: 048
     Dates: start: 20140304, end: 20140419
  22. TAKEPRON OD [Concomitant]
     Active Substance: LANSOPRAZOLE
     Dosage: 15 MG, 1X/DAY
     Route: 048
     Dates: start: 20140304, end: 20140403
  23. ZYPREXA [Suspect]
     Active Substance: OLANZAPINE
     Dosage: 3.75 MG, 1X/DAY
     Route: 048
     Dates: start: 20140404, end: 20140404
  24. ZYPREXA [Suspect]
     Active Substance: OLANZAPINE
     Dosage: 1.25 MG, 1X/DAY
     Route: 049
     Dates: start: 20140407, end: 20140418
  25. MORPHINE HYDROCHLORIDE [Concomitant]
     Active Substance: MORPHINE HYDROCHLORIDE
     Dosage: 22 MG, 1X/DAY
     Dates: start: 20140402, end: 20140407
  26. NORVASC [Concomitant]
     Active Substance: AMLODIPINE BESYLATE
     Dosage: 2.5 MG, 2X/DAY
     Route: 048
     Dates: start: 20140223, end: 20140410

REACTIONS (4)
  - Aspartate aminotransferase increased [Fatal]
  - Non-small cell lung cancer [Fatal]
  - Alanine aminotransferase increased [Fatal]
  - Disease progression [Fatal]

NARRATIVE: CASE EVENT DATE: 20140403
